FAERS Safety Report 20656150 (Version 1)
Quarter: 2022Q1

REPORT INFORMATION
  Report Type: Spontaneous
  Country: US (occurrence: US)
  Receive Date: 20220330
  Receipt Date: 20220330
  Transmission Date: 20220423
  Serious: No
  Sender: FDA-Public Use
  Company Number: US-JNJFOC-20220342173

PATIENT
  Sex: Male
  Weight: 96.248 kg

DRUGS (3)
  1. XARELTO [Suspect]
     Active Substance: RIVAROXABAN
     Indication: Deep vein thrombosis
     Route: 048
  2. CIPROFLOXACIN [Concomitant]
     Active Substance: CIPROFLOXACIN
     Indication: Urinary tract infection
     Route: 065
  3. RIVASTIGMINE [Concomitant]
     Active Substance: RIVASTIGMINE
     Indication: Concussion
     Route: 061

REACTIONS (1)
  - Inappropriate schedule of product administration [Unknown]
